FAERS Safety Report 8796199 (Version 1)
Quarter: 2012Q4

REPORT INFORMATION
  Report Type: 
  Country: US (occurrence: US)
  Receive Date: 20120919
  Receipt Date: 20120919
  Transmission Date: 20130627
  Serious: Yes (Hospitalization, Other)
  Sender: FDA-Public Use
  Company Number: US-ELI_LILLY_AND_COMPANY-US201209002262

PATIENT
  Age: 61 Year
  Sex: Female

DRUGS (9)
  1. HUMALOG LISPRO [Suspect]
     Indication: TYPE 2 DIABETES MELLITUS
     Dosage: 5 u, tid
  2. HUMULIN REGULAR [Concomitant]
     Indication: TYPE 2 DIABETES MELLITUS
     Dosage: UNK UNK, unknown
     Route: 042
  3. INSULIN GLARGINE [Concomitant]
     Dosage: 20 u, bid
  4. BETA BLOCKING AGENTS [Concomitant]
  5. CALCIUM CHANNEL BLOCKERS [Concomitant]
  6. FIBRATE [Concomitant]
  7. PLAVIX [Concomitant]
  8. ASA [Concomitant]
  9. ANTIDEPRESSANTS [Concomitant]

REACTIONS (7)
  - Diabetic ketoacidosis [Unknown]
  - Renal failure chronic [Unknown]
  - Blood glucose increased [Recovering/Resolving]
  - Nausea [Unknown]
  - Vomiting [Unknown]
  - Diarrhoea [Unknown]
  - Glycosylated haemoglobin increased [Unknown]
